FAERS Safety Report 21889482 (Version 1)
Quarter: 2023Q1

REPORT INFORMATION
  Report Type: Spontaneous
  Country: DE (occurrence: None)
  Receive Date: 20230120
  Receipt Date: 20230120
  Transmission Date: 20230418
  Serious: Yes (Death, Life-Threatening)
  Sender: FDA-Public Use
  Company Number: 2023A012068

PATIENT
  Age: 86 Year
  Sex: Female

DRUGS (1)
  1. ONDEXXYA [Suspect]
     Active Substance: ANDEXANET ALFA
     Indication: Cerebral haemorrhage
     Dosage: 1760.0MG UNKNOWN
     Route: 040
     Dates: start: 20230103

REACTIONS (1)
  - Embolism [Fatal]

NARRATIVE: CASE EVENT DATE: 20230103
